FAERS Safety Report 9820316 (Version 2)
Quarter: 2014Q1

REPORT INFORMATION
  Report Type: Spontaneous
  Country: US (occurrence: US)
  Receive Date: 20140116
  Receipt Date: 20140218
  Transmission Date: 20141002
  Serious: No
  Sender: FDA-Public Use
  Company Number: US-009507513-1401USA005962

PATIENT
  Age: 74 Year
  Sex: Female

DRUGS (2)
  1. EMEND [Suspect]
     Indication: LUNG NEOPLASM MALIGNANT
     Dosage: 150 MG, ONCE; 20 MIN, INTERRUPTED AFTER 7 MIN
     Route: 042
     Dates: start: 20140114, end: 20140114
  2. EMEND [Suspect]
     Dosage: UNK
     Route: 042
     Dates: start: 2013, end: 2013

REACTIONS (2)
  - Erythema [Not Recovered/Not Resolved]
  - Erythema [Not Recovered/Not Resolved]
